FAERS Safety Report 11820399 (Version 4)
Quarter: 2016Q3

REPORT INFORMATION
  Report Type: Spontaneous
  Country: US (occurrence: US)
  Receive Date: 20151210
  Receipt Date: 20160823
  Transmission Date: 20161109
  Serious: Yes (Disabling, Other)
  Sender: FDA-Public Use
  Company Number: US-SUN PHARMACEUTICAL INDUSTRIES LTD-2015US-107372

PATIENT
  Age: 23 Year
  Sex: Female

DRUGS (4)
  1. MOXIFLOXACIN. [Suspect]
     Active Substance: MOXIFLOXACIN
     Indication: OROPHARYNGEAL PAIN
     Dosage: 400 MG, DAILY
     Route: 065
     Dates: start: 201008
  2. CIPROFLOXACIN. [Suspect]
     Active Substance: CIPROFLOXACIN
     Indication: DIARRHOEA INFECTIOUS
     Dosage: 500 MG, BID
     Route: 065
  3. MOXIFLOXACIN. [Suspect]
     Active Substance: MOXIFLOXACIN
     Indication: PYREXIA
  4. PANTOPRAZOLE [Concomitant]
     Active Substance: PANTOPRAZOLE SODIUM
     Indication: NAUSEA
     Dosage: UNK
     Route: 065

REACTIONS (25)
  - Anaemia [Unknown]
  - Immune system disorder [Unknown]
  - Sinusitis [Not Recovered/Not Resolved]
  - Autonomic nervous system imbalance [Unknown]
  - Activities of daily living impaired [Not Recovered/Not Resolved]
  - Upper respiratory tract infection [Not Recovered/Not Resolved]
  - Arthralgia [Unknown]
  - Postural orthostatic tachycardia syndrome [Not Recovered/Not Resolved]
  - Impaired gastric emptying [Not Recovered/Not Resolved]
  - Myalgia [Unknown]
  - Leukopenia [Unknown]
  - Seizure [Not Recovered/Not Resolved]
  - Gastrointestinal pain [Not Recovered/Not Resolved]
  - Fatigue [Not Recovered/Not Resolved]
  - Amnesia [Not Recovered/Not Resolved]
  - Disturbance in attention [Not Recovered/Not Resolved]
  - Irritable bowel syndrome [Not Recovered/Not Resolved]
  - Weight decreased [Unknown]
  - Diffuse alopecia [Unknown]
  - Multiple chemical sensitivity [Unknown]
  - Ulcerative keratitis [Unknown]
  - Tendonitis [Unknown]
  - Mood swings [Unknown]
  - Autonomic neuropathy [Unknown]
  - Migraine [Not Recovered/Not Resolved]
